FAERS Safety Report 4885740-2 (Version None)
Quarter: 2006Q1

REPORT INFORMATION
  Report Type: 
  Country: None (occurrence: None)
  Receive Date: 20060117
  Receipt Date: 20060105
  Transmission Date: 20060701
  Serious: Yes (Death, Hospitalization)
  Sender: FDA-Public Use
  Company Number: 2005168006

PATIENT
  Age: 78 Year
  Sex: Female

DRUGS (2)
  1. XALATAN [Suspect]
     Indication: GLAUCOMA
     Dosage: ( 1 IN 1D), OPHTHAMIC
     Route: 047
     Dates: start: 20000721, end: 20040101
  2. DRUG, UNSPECIFIED (DRUG, UNSPECIFIED) [Concomitant]

REACTIONS (5)
  - ASTHMA [None]
  - COMA [None]
  - CONDITION AGGRAVATED [None]
  - INFLUENZA [None]
  - PNEUMONIA [None]
